FAERS Safety Report 6724855-0 (Version None)
Quarter: 2010Q2

REPORT INFORMATION
  Report Type: 
  Country: None (occurrence: None)
  Receive Date: 20100513
  Receipt Date: 20100513
  Transmission Date: 20101027
  Serious: Yes (Death)
  Sender: FDA-Public Use
  Company Number: None

PATIENT
  Sex: Male
  Weight: 70.4 kg

DRUGS (1)
  1. TAXOL [Suspect]
     Indication: LUNG NEOPLASM MALIGNANT
     Dosage: TAXOL 92MG 1X IV INFUSION ; 5/3/2010- 20 CC INFUSED
     Route: 042
     Dates: start: 20100503

REACTIONS (6)
  - FEELING HOT [None]
  - FLUSHING [None]
  - GENERAL PHYSICAL HEALTH DETERIORATION [None]
  - INFUSION RELATED REACTION [None]
  - PULSE ABSENT [None]
  - UNRESPONSIVE TO STIMULI [None]
